FAERS Safety Report 9244697 (Version 2)
Quarter: 2014Q1

REPORT INFORMATION
  Report Type: Spontaneous
  Country: IT (occurrence: IT)
  Receive Date: 20130422
  Receipt Date: 20140205
  Transmission Date: 20141002
  Serious: Yes (Other)
  Sender: FDA-Public Use
  Company Number: IT-ACCORD-017241

PATIENT
  Age: 54 Year
  Sex: Male
  Weight: 50 kg

DRUGS (6)
  1. GEMCITABINE [Suspect]
     Indication: BLADDER CANCER
     Dosage: CONCENTRATE FOR SOLUTION FOR INFUSION
     Route: 042
     Dates: start: 20130204
  2. SOLDESAM [Concomitant]
     Indication: BLADDER CANCER
     Route: 042
     Dates: start: 20130204, end: 20130306
  3. ONDANSETRON/ONDANSETRON HYDROCHLORIDE [Concomitant]
     Indication: BLADDER CANCER
     Route: 042
     Dates: start: 20130204, end: 20130306
  4. CISPLATIN [Suspect]
     Indication: BLADDER CANCER
     Route: 042
     Dates: start: 20130204
  5. LASIX [Concomitant]
     Indication: BLADDER CANCER
     Route: 042
     Dates: start: 20130204, end: 20130306
  6. RANIDIL [Concomitant]
     Indication: BLADDER CANCER
     Route: 042
     Dates: start: 20130204, end: 20130306

REACTIONS (9)
  - Paraesthesia [Recovering/Resolving]
  - Dry skin [Recovering/Resolving]
  - Nausea [Recovering/Resolving]
  - Dyspnoea [Recovering/Resolving]
  - Constipation [Recovering/Resolving]
  - Vomiting [Recovering/Resolving]
  - Fatigue [Recovering/Resolving]
  - Abdominal pain [Recovering/Resolving]
  - Asthenia [Recovering/Resolving]
